FAERS Safety Report 4453502-6 (Version None)
Quarter: 2004Q3

REPORT INFORMATION
  Report Type: 
  Country: None (occurrence: None)
  Receive Date: 20040920
  Receipt Date: 20040902
  Transmission Date: 20050211
  Serious: Yes (Other)
  Sender: FDA-Public Use
  Company Number: DE-JNJFOC-20040901057

PATIENT
  Age: 13 Year
  Sex: Male

DRUGS (1)
  1. CONCERTA [Suspect]
     Route: 049
     Dates: start: 20040818

REACTIONS (3)
  - MONOCYTOSIS [None]
  - NEUTROPENIA [None]
  - WHITE BLOOD CELL COUNT DECREASED [None]
